FAERS Safety Report 9464629 (Version 2)
Quarter: 2013Q4

REPORT INFORMATION
  Report Type: Spontaneous
  Country: US (occurrence: US)
  Receive Date: 20130819
  Receipt Date: 20131003
  Transmission Date: 20140711
  Serious: No
  Sender: FDA-Public Use
  Company Number: US-PFIZER INC-2013238103

PATIENT
  Age: 61 Year
  Sex: Female
  Weight: 96.6 kg

DRUGS (13)
  1. XELJANZ [Suspect]
     Indication: RHEUMATOID ARTHRITIS
     Dosage: 5 MG, TWICE A DAY
     Route: 048
     Dates: start: 2013
  2. AMLODIPINE [Concomitant]
     Dosage: 5 MG, UNK
  3. SYNTHROID [Concomitant]
     Dosage: 50 UG, UNK
  4. LEFLUNOMIDE [Concomitant]
     Dosage: 20 MG, UNK
  5. LORAZEPAM [Concomitant]
     Dosage: 1 MG, UNK
  6. METFORMIN [Concomitant]
     Dosage: 1000 MG, 2X/DAY
  7. METHYLPRED [Concomitant]
     Dosage: 4 MG, UNK
  8. PYRIDOXINE [Concomitant]
     Dosage: 50 MG, UNK
  9. ADVIL [Concomitant]
     Dosage: 200 MG, UNK
  10. VITAMIN D [Concomitant]
     Dosage: 2000 IU, UNK
  11. ACIPHEX [Concomitant]
     Dosage: 20 MG, UNK
  12. BENICAR HCT [Concomitant]
     Dosage: 12.5 HYDROCHLOROTHIAZIDE/ 40 OLMESARTAN MEDOXOMIL, UNK
  13. ASPIRIN [Concomitant]
     Dosage: 81 MG, UNK

REACTIONS (6)
  - Diarrhoea [Unknown]
  - Weight decreased [Unknown]
  - Liver function test abnormal [Recovered/Resolved]
  - Nasopharyngitis [Unknown]
  - Blood glucose fluctuation [Unknown]
  - Pharyngeal mass [Unknown]
